FAERS Safety Report 23178045 (Version 1)
Quarter: 2023Q4

REPORT INFORMATION
  Report Type: Spontaneous
  Country: FR (occurrence: FR)
  Receive Date: 20231113
  Receipt Date: 20231113
  Transmission Date: 20240109
  Serious: Yes (Hospitalization)
  Sender: FDA-Public Use
  Company Number: None

PATIENT
  Age: 71 Year
  Sex: Female

DRUGS (5)
  1. LEVOFLOXACIN [Suspect]
     Active Substance: LEVOFLOXACIN
     Indication: Osteitis
     Dosage: 750 MILLIGRAM, QD (1.5 TABLET)
     Route: 048
     Dates: start: 20230708, end: 20230719
  2. GENTAMICIN [Suspect]
     Active Substance: GENTAMICIN
     Indication: Osteitis
     Dosage: 336 MILLIGRAM, QD
     Route: 042
     Dates: start: 20230623, end: 20230625
  3. RIFAMPIN [Suspect]
     Active Substance: RIFAMPIN
     Indication: Osteitis
     Dosage: 900 MG, QD (600 MG MORNING- 0-300 MG EVENING)
     Route: 048
     Dates: start: 20230708, end: 20230713
  4. RIFAMPIN [Suspect]
     Active Substance: RIFAMPIN
     Dosage: 600 MG, QD (300 MG MORNING- 0-300 MG EVENING)
     Route: 048
     Dates: start: 20230713, end: 20230719
  5. CLOXACILLIN [Suspect]
     Active Substance: CLOXACILLIN
     Indication: Osteitis
     Dosage: 12 GRAM, QD
     Route: 042
     Dates: start: 20230719, end: 20230805

REACTIONS (1)
  - Labyrinthitis [Not Recovered/Not Resolved]

NARRATIVE: CASE EVENT DATE: 20230730
